FAERS Safety Report 13563195 (Version 1)
Quarter: 2017Q2

REPORT INFORMATION
  Report Type: Spontaneous
  Country: JP (occurrence: JP)
  Receive Date: 20170519
  Receipt Date: 20170519
  Transmission Date: 20170830
  Serious: Yes (Other)
  Sender: FDA-Public Use
  Company Number: JP-ASTELLAS-2017JP008658

PATIENT
  Age: 37 Year
  Sex: Female

DRUGS (8)
  1. TACROLIMUS. [Suspect]
     Active Substance: TACROLIMUS
     Indication: CORD BLOOD TRANSPLANT THERAPY
     Dosage: UNK UNK, UNKNOWN FREQ.
     Route: 065
  2. FLUDARABINE [Concomitant]
     Active Substance: FLUDARABINE PHOSPHATE
     Route: 065
  3. BUSULFAN. [Concomitant]
     Active Substance: BUSULFAN
     Route: 065
  4. FLUDARABINE [Concomitant]
     Active Substance: FLUDARABINE PHOSPHATE
     Indication: CORD BLOOD TRANSPLANT THERAPY
     Route: 065
  5. RITUXIMAB [Concomitant]
     Active Substance: RITUXIMAB
     Route: 065
  6. BUSULFAN. [Concomitant]
     Active Substance: BUSULFAN
     Indication: CORD BLOOD TRANSPLANT THERAPY
     Route: 065
  7. MYCOPHENOLATE MOFETIL. [Concomitant]
     Active Substance: MYCOPHENOLATE MOFETIL
     Indication: CORD BLOOD TRANSPLANT THERAPY
     Dosage: UNK UNK, UNKNOWN FREQ.
     Route: 065
  8. RITUXIMAB [Concomitant]
     Active Substance: RITUXIMAB
     Indication: DONOR SPECIFIC ANTIBODY PRESENT
     Route: 065

REACTIONS (2)
  - Acute graft versus host disease in skin [Recovered/Resolved]
  - Obliterative bronchiolitis [Recovered/Resolved]
